FAERS Safety Report 24459496 (Version 1)
Quarter: 2024Q4

REPORT INFORMATION
  Report Type: Report from Study
  Country: US (occurrence: US)
  Receive Date: 20241018
  Receipt Date: 20241018
  Transmission Date: 20250115
  Serious: No
  Sender: ROCHE
  Company Number: US-ROCHE-3549713

PATIENT
  Age: 50 Year
  Sex: Male
  Weight: 141.16 kg

DRUGS (8)
  1. RITUXAN [Suspect]
     Active Substance: RITUXIMAB
     Indication: Pemphigus
     Route: 042
     Dates: start: 20200507, end: 20200521
  2. RITUXAN [Suspect]
     Active Substance: RITUXIMAB
     Dosage: MOST RECENT DOSE 21-DEC-2023 ;ONGOING: YES
     Route: 042
     Dates: start: 20220615
  3. RUXIENCE [Concomitant]
     Active Substance: RITUXIMAB-PVVR
  4. RUXIENCE [Concomitant]
     Active Substance: RITUXIMAB-PVVR
  5. RUXIENCE [Concomitant]
     Active Substance: RITUXIMAB-PVVR
  6. SOLU-MEDROL [Concomitant]
     Active Substance: METHYLPREDNISOLONE SODIUM SUCCINATE
     Route: 042
  7. BENADRYL [Concomitant]
     Active Substance: DIPHENHYDRAMINE HYDROCHLORIDE
     Route: 042
  8. TYLENOL [Concomitant]
     Active Substance: ACETAMINOPHEN
     Route: 048

REACTIONS (3)
  - Mouth ulceration [Recovered/Resolved]
  - Dysphonia [Recovered/Resolved]
  - Ulcer [Recovered/Resolved]

NARRATIVE: CASE EVENT DATE: 20210616
